FAERS Safety Report 10017852 (Version 5)
Quarter: 2015Q1

REPORT INFORMATION
  Report Type: Spontaneous
  Country: NZ (occurrence: NZ)
  Receive Date: 20140318
  Receipt Date: 20150202
  Transmission Date: 20150720
  Serious: Yes (Hospitalization)
  Sender: FDA-Public Use
  Company Number: NZ-ABBVIE-13P-118-1179964-00

PATIENT
  Age: 58 Year
  Sex: Female

DRUGS (3)
  1. LEFLUNOMIDE. [Concomitant]
     Active Substance: LEFLUNOMIDE
     Indication: PRODUCT USED FOR UNKNOWN INDICATION
  2. TRAMADOL [Concomitant]
     Active Substance: TRAMADOL
     Indication: PRODUCT USED FOR UNKNOWN INDICATION
  3. HUMIRA [Suspect]
     Active Substance: ADALIMUMAB
     Indication: RHEUMATOID ARTHRITIS
     Route: 050
     Dates: start: 20131205

REACTIONS (8)
  - Arthralgia [Unknown]
  - Trigger finger [Not Recovered/Not Resolved]
  - Sciatica [Recovering/Resolving]
  - Bedridden [Unknown]
  - Arthropathy [Not Recovered/Not Resolved]
  - Drug effect decreased [Unknown]
  - Fatigue [Unknown]
  - Lower respiratory tract infection [Unknown]

NARRATIVE: CASE EVENT DATE: 201401
